FAERS Safety Report 17930713 (Version 5)
Quarter: 2023Q1

REPORT INFORMATION
  Report Type: Report from Study
  Country: IL (occurrence: IL)
  Receive Date: 20200623
  Receipt Date: 20230310
  Transmission Date: 20230418
  Serious: Yes (Death, Hospitalization, Congenital Anomaly, Other)
  Sender: FDA-Public Use
  Company Number: IL-ABBVIE-20K-082-3427537-00

PATIENT
  Age: 84 Year
  Sex: Male
  Weight: 57 kg

DRUGS (25)
  1. VENETOCLAX [Suspect]
     Active Substance: VENETOCLAX
     Indication: Acute myeloid leukaemia
     Route: 048
     Dates: start: 20200518
  2. VENETOCLAX [Suspect]
     Active Substance: VENETOCLAX
     Indication: Acute myeloid leukaemia
     Dosage: RAMP UP
     Route: 048
     Dates: start: 20200518, end: 20200518
  3. VENETOCLAX [Suspect]
     Active Substance: VENETOCLAX
     Indication: Acute myeloid leukaemia
     Dosage: RAMP UP
     Route: 048
     Dates: start: 20200519, end: 20200519
  4. VENETOCLAX [Suspect]
     Active Substance: VENETOCLAX
     Indication: Acute myeloid leukaemia
     Route: 048
     Dates: start: 20200520, end: 20200614
  5. POTASSIUM [Concomitant]
     Active Substance: POTASSIUM
     Indication: Product used for unknown indication
     Route: 048
     Dates: start: 20200528
  6. POTASSIUM [Concomitant]
     Active Substance: POTASSIUM
     Indication: Product used for unknown indication
     Route: 048
     Dates: start: 20200507, end: 20200520
  7. POTASSIUM [Concomitant]
     Active Substance: POTASSIUM
     Indication: Product used for unknown indication
     Dosage: POTASSIUM ADDITIVES
  8. BENDIX [Concomitant]
     Indication: Gastric disorder
     Dates: start: 20200519, end: 20200613
  9. NEXIUM [Concomitant]
     Active Substance: ESOMEPRAZOLE MAGNESIUM
     Indication: Gastric ulcer
     Dosage: 40 MG
     Dates: start: 20200506
  10. VIDAZA [Suspect]
     Active Substance: AZACITIDINE
     Indication: Acute myeloid leukaemia
     Dosage: CYCLE 1
     Route: 042
     Dates: start: 20200518, end: 20200518
  11. VIDAZA [Suspect]
     Active Substance: AZACITIDINE
     Indication: Acute myeloid leukaemia
     Dosage: CYCLE 1
     Route: 042
     Dates: start: 20200519, end: 20200519
  12. VIDAZA [Suspect]
     Active Substance: AZACITIDINE
     Indication: Acute myeloid leukaemia
     Dosage: CYCLE 1
     Route: 042
     Dates: start: 20200520, end: 20200520
  13. VIDAZA [Suspect]
     Active Substance: AZACITIDINE
     Indication: Acute myeloid leukaemia
     Dosage: CYCLE 1
     Route: 042
     Dates: start: 20200521, end: 20200521
  14. VIDAZA [Suspect]
     Active Substance: AZACITIDINE
     Indication: Acute myeloid leukaemia
     Dosage: CYCLE 1
     Route: 042
     Dates: start: 20200526, end: 20200526
  15. BITNI X [Concomitant]
     Indication: Gastric disorder
     Dosage: (20) TAB?STRENGTH: 262 MG
     Dates: start: 20200519, end: 20200613
  16. HYDREA [Suspect]
     Active Substance: HYDROXYUREA
     Indication: Acute myeloid leukaemia
     Route: 048
     Dates: start: 20200506, end: 20200517
  17. BROTIZOLAM [Concomitant]
     Active Substance: BROTIZOLAM
     Indication: Product used for unknown indication
     Dates: start: 20190630
  18. Inotyol [Concomitant]
     Indication: Prophylaxis
     Dosage: STRENGTH: 50GM
     Dates: start: 20200526, end: 20200611
  19. LORAZEPAM [Concomitant]
     Active Substance: LORAZEPAM
     Indication: Anxiety
     Dates: start: 20190630
  20. AZACITIDINE [Suspect]
     Active Substance: AZACITIDINE
     Indication: Acute myeloid leukaemia
     Dosage: 120 MILLIGRAM,?DURATION TEXT: CYCLE 1
     Route: 042
     Dates: start: 20200518, end: 20200526
  21. MIRO [Concomitant]
     Indication: Depression
     Dates: start: 20190630
  22. TEVACUTAN [Concomitant]
     Indication: Skin infection
     Dosage: CR 1%?STRENGTH: 15 G
     Dates: start: 20131031, end: 20200520
  23. ZINC OXIDE [Concomitant]
     Active Substance: ZINC OXIDE
     Indication: Rash
     Dosage: STRENGTH: 40 MG
     Dates: start: 20200520, end: 20200520
  24. ALLOPURINOL [Concomitant]
     Active Substance: ALLOPURINOL
     Indication: Prophylaxis
     Dates: start: 20200518, end: 20200526
  25. PAPAVERINE [Concomitant]
     Active Substance: PAPAVERINE
     Indication: Abdominal pain
     Dates: start: 20200519, end: 20200613

REACTIONS (14)
  - Acute myeloid leukaemia [Fatal]
  - Disease progression [Fatal]
  - Pancytopenia [Unknown]
  - Diarrhoea [Recovered/Resolved]
  - Neutropenia [Recovered/Resolved]
  - Thrombocytopenia [Recovered/Resolved]
  - Monocyte count decreased [Unknown]
  - Hypokalaemia [Recovering/Resolving]
  - Haematoma [Recovered/Resolved]
  - Haemolysis [Recovered/Resolved]
  - Decubitus ulcer [Recovered/Resolved]
  - Neutropenia [Recovering/Resolving]
  - Investigation abnormal [Unknown]
  - Subdural haematoma [Recovered/Resolved]

NARRATIVE: CASE EVENT DATE: 20200518
